FAERS Safety Report 4302214-8 (Version None)
Quarter: 2004Q1

REPORT INFORMATION
  Report Type: 
  Country: None (occurrence: None)
  Receive Date: 20040126
  Receipt Date: 20031008
  Transmission Date: 20041129
  Serious: No
  Sender: FDA-Public Use
  Company Number: USA031049406

PATIENT
  Age: 8 Year
  Sex: Male
  Weight: 31 kg

DRUGS (3)
  1. STRATTERA [Suspect]
     Indication: ATTENTION DEFICIT/HYPERACTIVITY DISORDER
     Dosage: 18 MG/ IN THE EVENING
     Dates: start: 20031001
  2. TENEX [Concomitant]
  3. ZOLOFT [Concomitant]

REACTIONS (3)
  - MASTICATION DISORDER [None]
  - TIC [None]
  - TRAUMATIC ULCER [None]
